FAERS Safety Report 9356535 (Version 1)
Quarter: 2013Q2

REPORT INFORMATION
  Report Type: Spontaneous
  Country: CN (occurrence: None)
  Receive Date: 20130614
  Receipt Date: 20130614
  Transmission Date: 20140414
  Serious: Yes (Hospitalization)
  Sender: FDA-Public Use
  Company Number: VAL_02565_2013

PATIENT
  Age: 44 Year
  Sex: Female

DRUGS (6)
  1. ROCALTROL [Suspect]
     Indication: OSTEOPOROSIS
     Route: 048
     Dates: start: 20130505
  2. CELLCEPT [Suspect]
     Indication: RENAL TRANSPLANT
     Route: 048
     Dates: start: 20100528
  3. TACROLIMUS [Concomitant]
  4. METHYLPREDNISOLONE [Concomitant]
  5. CALCIUM CARBONATE [Concomitant]
  6. LOSARTAN [Concomitant]

REACTIONS (4)
  - Presbyopia [None]
  - Cataract [None]
  - Osteoporosis [None]
  - Pyrexia [None]
